FAERS Safety Report 5861518-8 (Version None)
Quarter: 2008Q3

REPORT INFORMATION
  Report Type: 
  Country: None (occurrence: None)
  Receive Date: 20080827
  Receipt Date: 20080530
  Transmission Date: 20090109
  Serious: No
  Sender: FDA-Public Use
  Company Number: US-ABBOTT-08P-163-0454129-00

PATIENT
  Sex: Female

DRUGS (4)
  1. COATED PDS [Suspect]
     Indication: HYPERCHOLESTEROLAEMIA
     Route: 048
     Dates: start: 20080528
  2. VALSARTAN [Concomitant]
     Indication: HYPERTENSION
     Dosage: 325 MG DAILY
     Route: 048
  3. ATENOLOL [Concomitant]
     Indication: HYPERTENSION
     Dosage: DAILY
     Route: 048
  4. CELECOXIB [Concomitant]
     Indication: PAIN
     Route: 048

REACTIONS (1)
  - BACK PAIN [None]
